FAERS Safety Report 15760850 (Version 1)
Quarter: 2018Q4

REPORT INFORMATION
  Report Type: Spontaneous
  Country: US (occurrence: US)
  Receive Date: 20181226
  Receipt Date: 20181226
  Transmission Date: 20190205
  Serious: No
  Sender: FDA-Public Use
  Company Number: US-PFIZER INC-2018529003

PATIENT
  Sex: Female

DRUGS (1)
  1. ATORVASTATIN CALCIUM. [Suspect]
     Active Substance: ATORVASTATIN CALCIUM
     Dosage: UNK, 1X/DAY (AT NIGHT)

REACTIONS (4)
  - Liver function test abnormal [Unknown]
  - Drug effect incomplete [Unknown]
  - Intentional product misuse [Unknown]
  - Blood cholesterol increased [Unknown]
